FAERS Safety Report 17009811 (Version 1)
Quarter: 2019Q4

REPORT INFORMATION
  Report Type: Spontaneous
  Country: US (occurrence: US)
  Receive Date: 20190930
  Receipt Date: 20190930
  Transmission Date: 20200122
  Serious: Yes (Hospitalization)
  Sender: FDA-Public Use
  Company Number: None

PATIENT
  Age: 57 Year
  Sex: Male

DRUGS (17)
  1. ACYCLOVIR. [Concomitant]
     Active Substance: ACYCLOVIR
  2. ATORVASTATIN [Concomitant]
     Active Substance: ATORVASTATIN
  3. AZATHIOPRINE. [Concomitant]
     Active Substance: AZATHIOPRINE
  4. SERTRALINE [Suspect]
     Active Substance: SERTRALINE HYDROCHLORIDE
  5. TACROLIMUS. [Suspect]
     Active Substance: TACROLIMUS
     Indication: LIVER TRANSPLANT
     Route: 048
     Dates: start: 20170511
  6. URSODIOL. [Concomitant]
     Active Substance: URSODIOL
  7. DOCUSATE [Concomitant]
     Active Substance: DOCUSATE
  8. MULTIVITAMIN [Concomitant]
     Active Substance: VITAMINS
  9. AZATHIOPRINE 50MG [Suspect]
     Active Substance: AZATHIOPRINE
     Route: 048
  10. ASPIRIN. [Concomitant]
     Active Substance: ASPIRIN
  11. NYSTATIN. [Concomitant]
     Active Substance: NYSTATIN
  12. OMEPRAZOLE. [Concomitant]
     Active Substance: OMEPRAZOLE
  13. PREDNISONE. [Concomitant]
     Active Substance: PREDNISONE
  14. FUROSEMIDE. [Concomitant]
     Active Substance: FUROSEMIDE
  15. LANSOPRAZOLE. [Concomitant]
     Active Substance: LANSOPRAZOLE
  16. LEVOTHYROXIN [Concomitant]
     Active Substance: LEVOTHYROXINE
  17. NOVOLOG [Concomitant]
     Active Substance: INSULIN ASPART

REACTIONS (2)
  - Knee arthroplasty [None]
  - Therapy cessation [None]

NARRATIVE: CASE EVENT DATE: 20190910
